FAERS Safety Report 19455580 (Version 1)
Quarter: 2021Q2

REPORT INFORMATION
  Report Type: Spontaneous
  Country: US (occurrence: US)
  Receive Date: 20210623
  Receipt Date: 20210623
  Transmission Date: 20210717
  Serious: Yes (Death)
  Sender: FDA-Public Use
  Company Number: None

PATIENT
  Age: 65 Year
  Sex: Female
  Weight: 88 kg

DRUGS (2)
  1. DILTIAZEM. [Suspect]
     Active Substance: DILTIAZEM
     Indication: ATRIAL FIBRILLATION
     Dosage: ?          OTHER FREQUENCY:ONCE;??
     Route: 042
     Dates: start: 20210617, end: 20210618
  2. METOPROLOL. [Suspect]
     Active Substance: METOPROLOL
     Dates: start: 20210611, end: 20210617

REACTIONS (7)
  - Sepsis [None]
  - Bacteraemia [None]
  - Drug interaction [None]
  - Atrioventricular block [None]
  - Pulseless electrical activity [None]
  - Cardiac arrest [None]
  - COVID-19 [None]

NARRATIVE: CASE EVENT DATE: 20210618
